FAERS Safety Report 8370282-2 (Version None)
Quarter: 2012Q2

REPORT INFORMATION
  Report Type: 
  Country: None (occurrence: None)
  Receive Date: 20120518
  Receipt Date: 20110915
  Transmission Date: 20120825
  Serious: No
  Sender: FDA-Public Use
  Company Number: US-ASTRAZENECA-2011SE63415

PATIENT
  Age: 64 Year
  Sex: Male

DRUGS (4)
  1. ANTIBIOTIC [Concomitant]
     Dosage: UNKNOWN
  2. HERBAL PREPARATION [Concomitant]
     Dosage: UNKNOWN
  3. PRILOSEC OTC [Suspect]
     Route: 048
     Dates: start: 20110907, end: 20110914
  4. LISINOPRIL [Concomitant]
     Indication: BLOOD PRESSURE ABNORMAL
     Dosage: UNKNOWN

REACTIONS (2)
  - PROSTATIC DISORDER [None]
  - POLLAKIURIA [None]
